FAERS Safety Report 6493574-0 (Version None)
Quarter: 2009Q4

REPORT INFORMATION
  Report Type: 
  Country: None (occurrence: None)
  Receive Date: 20091209
  Receipt Date: 20091126
  Transmission Date: 20100525
  Serious: Yes (Congenital Anomaly)
  Sender: FDA-Public Use
  Company Number: ADR524072009

PATIENT
  Sex: Female

DRUGS (3)
  1. CITALOPRAM (MFR: UNKNOWN) [Suspect]
     Indication: ANXIETY
     Dosage: TRANSPLACENTAL
     Route: 064
     Dates: start: 20060501
  2. CITALOPRAM (MFR: UNKNOWN) [Suspect]
     Indication: DEPRESSION
     Dosage: TRANSPLACENTAL
     Route: 064
     Dates: start: 20060501
  3. FERROUS FUMARATE [Concomitant]

REACTIONS (2)
  - CONGENITAL ANOMALY [None]
  - TALIPES [None]
